FAERS Safety Report 6585888-0 (Version None)
Quarter: 2010Q1

REPORT INFORMATION
  Report Type: 
  Country: None (occurrence: None)
  Receive Date: 20100217
  Receipt Date: 20100208
  Transmission Date: 20100710
  Serious: Yes (Other)
  Sender: FDA-Public Use
  Company Number: PHHY2010JP08188

PATIENT

DRUGS (2)
  1. FEMARA [Suspect]
     Route: 048
  2. CYCLOPHOSPHAMIDE [Concomitant]

REACTIONS (3)
  - ARTHRALGIA [None]
  - OSTEOPOROSIS [None]
  - SURGERY [None]
